FAERS Safety Report 9215574 (Version 2)
Quarter: 2013Q2

REPORT INFORMATION
  Report Type: Spontaneous
  Country: CA (occurrence: CA)
  Receive Date: 20130408
  Receipt Date: 20130429
  Transmission Date: 20140414
  Serious: Yes (Hospitalization)
  Sender: FDA-Public Use
  Company Number: CA-AMGEN-CANSP2013023744

PATIENT
  Age: 67 Year
  Sex: Male

DRUGS (9)
  1. ENBREL [Suspect]
     Indication: RHEUMATOID ARTHRITIS
     Dosage: 50 MG, QWK
     Route: 058
     Dates: start: 201002
  2. METHOTREXATE [Concomitant]
     Dosage: 20 MG, QWK
     Route: 058
     Dates: start: 1999
  3. FOLIC ACID [Concomitant]
     Dosage: UNK
  4. VITAMIN B12                        /00056201/ [Concomitant]
     Dosage: UNK
  5. MONOCOR [Concomitant]
     Dosage: 2.5 UNK, QD
  6. MAVIK [Concomitant]
     Dosage: 1 UNK, QD
  7. ASA [Concomitant]
     Dosage: 80 UNK, QD
  8. TICAGRELOR [Concomitant]
     Dosage: 90 TWICE DAILY
  9. LIPITOR [Concomitant]
     Dosage: 80 UNK, QD

REACTIONS (1)
  - Acute myocardial infarction [Recovered/Resolved]
